FAERS Safety Report 23338567 (Version 2)
Quarter: 2024Q1

REPORT INFORMATION
  Report Type: Spontaneous
  Country: CO (occurrence: CO)
  Receive Date: 20231226
  Receipt Date: 20240214
  Transmission Date: 20240410
  Serious: No
  Sender: FDA-Public Use
  Company Number: CO-PFIZER INC-PV202300201989

PATIENT
  Age: 12 Year
  Sex: Female

DRUGS (1)
  1. GENOTROPIN [Suspect]
     Active Substance: SOMATROPIN
     Dosage: 1.8 MG, DAILY
     Route: 058
     Dates: start: 201108, end: 20231210

REACTIONS (2)
  - Drug dose omission by device [Unknown]
  - Device failure [Unknown]

NARRATIVE: CASE EVENT DATE: 20231210
